FAERS Safety Report 24666263 (Version 3)
Quarter: 2024Q4

REPORT INFORMATION
  Report Type: Spontaneous
  Country: US (occurrence: US)
  Receive Date: 20241126
  Receipt Date: 20241210
  Transmission Date: 20250114
  Serious: Yes (Hospitalization, Other)
  Sender: ASTELLAS
  Company Number: US-ASTELLAS-2024-AER-019555

PATIENT
  Age: 81 Year
  Sex: Male

DRUGS (1)
  1. PADCEV [Suspect]
     Active Substance: ENFORTUMAB VEDOTIN\ENFORTUMAB VEDOTIN-EJFV
     Indication: Bladder cancer
     Dosage: WEEKLY, THREE WEEKS IN A ROW, EVERY 28 DAYS
     Route: 042
     Dates: start: 20240925, end: 20241106

REACTIONS (6)
  - Proctitis [Unknown]
  - Pulmonary embolism [Unknown]
  - Pain in extremity [Unknown]
  - General physical health deterioration [Unknown]
  - Conjunctivitis [Unknown]
  - Gait disturbance [Unknown]

NARRATIVE: CASE EVENT DATE: 20241111
